FAERS Safety Report 6098241-3 (Version None)
Quarter: 2009Q1

REPORT INFORMATION
  Report Type: 
  Country: None (occurrence: None)
  Receive Date: 20090227
  Receipt Date: 20090223
  Transmission Date: 20090719
  Serious: Yes (Other)
  Sender: FDA-Public Use
  Company Number: ES-AMGEN-STX335116

PATIENT
  Age: 79 Year
  Sex: Female

DRUGS (5)
  1. MIMPARA [Suspect]
     Indication: HYPERPARATHYROIDISM PRIMARY
     Route: 048
     Dates: start: 20080801, end: 20080830
  2. OLMESARTAN MEDOXOMIL [Concomitant]
     Route: 048
  3. AMLODIPINE [Concomitant]
     Route: 048
  4. TOLTERODINE TARTRATE [Concomitant]
     Route: 048
  5. EMCONCOR [Concomitant]
     Route: 048

REACTIONS (2)
  - MYALGIA [None]
  - PARAESTHESIA [None]
